FAERS Safety Report 8454522-7 (Version None)
Quarter: 2012Q2

REPORT INFORMATION
  Report Type: 
  Country: None (occurrence: None)
  Receive Date: 20120621
  Receipt Date: 20120614
  Transmission Date: 20120825
  Serious: No
  Sender: FDA-Public Use
  Company Number: US-BIOGENIDEC-2012BI021158

PATIENT
  Age: 41 Year
  Sex: Female

DRUGS (2)
  1. TYSABRI [Suspect]
     Indication: MULTIPLE SCLEROSIS
     Route: 042
     Dates: start: 20080612
  2. TOPAMAX [Concomitant]
     Indication: MIGRAINE
     Route: 048

REACTIONS (3)
  - MENSTRUATION DELAYED [None]
  - HYPOMENORRHOEA [None]
  - MENSTRUATION IRREGULAR [None]
